FAERS Safety Report 8383542-6 (Version None)
Quarter: 2012Q1

REPORT INFORMATION
  Report Type: 
  Country: None (occurrence: None)
  Receive Date: 20120323
  Receipt Date: 20110415
  Transmission Date: 20120608
  Serious: Yes (Hospitalization)
  Sender: FDA-Public Use
  Company Number: 163-21880-11032440

PATIENT
  Age: 85 Year
  Sex: Female

DRUGS (10)
  1. GLIMEPIRIDE [Concomitant]
  2. AMBIEN [Concomitant]
  3. ZOLOFT [Concomitant]
  4. OXYCODONE HCL [Concomitant]
  5. LORTAB [Concomitant]
  6. REVLIMID [Suspect]
     Indication: MYELODYSPLASTIC SYNDROME
     Dosage: 10 MG, DAILY FOR 28 DAYS, PO 5 MG, DAILY FOR 28 DAYS, PO 10 MG, QOD, PO
     Route: 048
     Dates: start: 20100726, end: 20101101
  7. REVLIMID [Suspect]
     Indication: MYELODYSPLASTIC SYNDROME
     Dosage: 10 MG, DAILY FOR 28 DAYS, PO 5 MG, DAILY FOR 28 DAYS, PO 10 MG, QOD, PO
     Route: 048
     Dates: start: 20101222, end: 20110113
  8. REVLIMID [Suspect]
     Indication: MYELODYSPLASTIC SYNDROME
     Dosage: 10 MG, DAILY FOR 28 DAYS, PO 5 MG, DAILY FOR 28 DAYS, PO 10 MG, QOD, PO
     Route: 048
     Dates: start: 20110113, end: 20110316
  9. REVLIMID [Suspect]
     Indication: MYELODYSPLASTIC SYNDROME
     Dosage: 10 MG, DAILY FOR 28 DAYS, PO 5 MG, DAILY FOR 28 DAYS, PO 10 MG, QOD, PO
     Route: 048
     Dates: start: 20101101, end: 20101222
  10. METOPROLOL TARTRATE [Concomitant]

REACTIONS (1)
  - OEDEMA PERIPHERAL [None]
